FAERS Safety Report 5915199-5 (Version None)
Quarter: 2008Q4

REPORT INFORMATION
  Report Type: 
  Country: None (occurrence: None)
  Receive Date: 20081010
  Receipt Date: 20080929
  Transmission Date: 20090506
  Serious: Yes (Hospitalization)
  Sender: FDA-Public Use
  Company Number: US-JNJFOC-20080402287

PATIENT
  Age: 79 Year
  Sex: Female
  Weight: 75.8 kg

DRUGS (23)
  1. DORIBAX [Suspect]
     Indication: KLEBSIELLA INFECTION
     Route: 041
  2. ENOXAPARIN SODIUM [Suspect]
     Indication: DRUG USE FOR UNKNOWN INDICATION
     Route: 065
  3. ASPIRIN [Suspect]
     Indication: DRUG USE FOR UNKNOWN INDICATION
     Route: 065
  4. CLONIDINE [Concomitant]
     Route: 065
  5. FENTANYL [Concomitant]
     Route: 065
  6. FUROSEMIDE [Concomitant]
     Route: 065
  7. HYDROMORPHONE HCL [Concomitant]
     Route: 065
  8. LISINOPRIL [Concomitant]
     Route: 065
  9. MORPHINE [Concomitant]
     Route: 065
  10. NITROGLYCERIN [Concomitant]
     Route: 065
  11. TIGECYCLINE [Concomitant]
     Route: 065
  12. FRESH FROZEN PLASMA [Concomitant]
     Indication: THROMBOCYTOPENIA
  13. AMIODARONE [Concomitant]
  14. DESMOPRESSIN ACETATE [Concomitant]
  15. DILTIAZEM HCL [Concomitant]
  16. HYDROCODONE BITARTRATE AND ACETAMINOPHEN [Concomitant]
  17. LANSOPRAZOLE [Concomitant]
  18. LEVOTYROXINE [Concomitant]
  19. METOCLOPRAMIDE [Concomitant]
  20. MORPHINE SULFATE INJ [Concomitant]
  21. PHYTONADIONE [Concomitant]
  22. PROPOFOL [Concomitant]
  23. PROPOXYPHENE [Concomitant]

REACTIONS (1)
  - POST PROCEDURAL HAEMORRHAGE [None]
